FAERS Safety Report 17672206 (Version 3)
Quarter: 2020Q2

REPORT INFORMATION
  Report Type: Report from Study
  Country: AU (occurrence: AU)
  Receive Date: 20200415
  Receipt Date: 20200527
  Transmission Date: 20200713
  Serious: Yes (Other)
  Sender: FDA-Public Use
  Company Number: AU-JNJFOC-20200410291

PATIENT
  Age: 54 Year
  Sex: Female

DRUGS (3)
  1. STELARA [Suspect]
     Active Substance: USTEKINUMAB
     Indication: CROHN^S DISEASE
     Route: 058
  2. STELARA [Suspect]
     Active Substance: USTEKINUMAB
     Indication: CROHN^S DISEASE
     Route: 042
  3. STELARA [Suspect]
     Active Substance: USTEKINUMAB

REACTIONS (5)
  - Dyspnoea [Recovered/Resolved]
  - Chest pain [Not Recovered/Not Resolved]
  - Inappropriate schedule of product administration [Unknown]
  - Crohn^s disease [Not Recovered/Not Resolved]
  - Sinus disorder [Not Recovered/Not Resolved]

NARRATIVE: CASE EVENT DATE: 202003
